FAERS Safety Report 19499104 (Version 8)
Quarter: 2022Q1

REPORT INFORMATION
  Report Type: Report from Study
  Country: US (occurrence: US)
  Receive Date: 20210706
  Receipt Date: 20220328
  Transmission Date: 20220423
  Serious: Yes (Life-Threatening, Hospitalization, Other)
  Sender: FDA-Public Use
  Company Number: US-SHIRE-US201918251

PATIENT
  Age: 47 Year
  Sex: Female
  Weight: 142 kg

DRUGS (18)
  1. LANADELUMAB [Suspect]
     Active Substance: LANADELUMAB
     Indication: Immune system disorder
     Dosage: 300 MILLIGRAM, Q2WEEK
     Route: 058
     Dates: start: 20190305
  2. LANADELUMAB [Suspect]
     Active Substance: LANADELUMAB
     Indication: Tracheostomy
     Dosage: 300 MILLIGRAM,Q2WEEKS
     Route: 058
     Dates: start: 20210603
  3. LANADELUMAB [Suspect]
     Active Substance: LANADELUMAB
     Dosage: 300 MILLIGRAM, Q2WEEKS
     Route: 058
     Dates: start: 20210604
  4. FIRAZYR [Suspect]
     Active Substance: ICATIBANT ACETATE
     Indication: Immune system disorder
     Dosage: 30 MILLIGRAM
     Route: 058
     Dates: start: 20190219
  5. FIRAZYR [Suspect]
     Active Substance: ICATIBANT ACETATE
     Indication: Immune system disorder
     Dosage: 30 MILLIGRAM
     Route: 058
     Dates: start: 20190219
  6. FIRAZYR [Suspect]
     Active Substance: ICATIBANT ACETATE
     Indication: Tracheostomy
     Dosage: 30 MILLIGRAM, Q2WEEKS
     Route: 058
     Dates: start: 20210604
  7. FIRAZYR [Suspect]
     Active Substance: ICATIBANT ACETATE
     Indication: Tracheostomy
     Dosage: 30 MILLIGRAM, Q2WEEKS
     Route: 058
     Dates: start: 20210604
  8. FIRAZYR [Suspect]
     Active Substance: ICATIBANT ACETATE
     Dosage: 30 MILLIGRAM
     Route: 058
     Dates: start: 20210604
  9. FIRAZYR [Suspect]
     Active Substance: ICATIBANT ACETATE
     Dosage: 30 MILLIGRAM
     Route: 058
     Dates: start: 20210604
  10. OLOPATADINE [Concomitant]
     Active Substance: OLOPATADINE
     Dosage: UNK
     Route: 065
  11. FOLIC ACID [Concomitant]
     Active Substance: FOLIC ACID
     Dosage: UNK
     Route: 065
  12. VITAMIN C [Concomitant]
     Active Substance: ASCORBIC ACID
     Dosage: UNK
     Route: 065
  13. CALCIUM PLUS D3 [Concomitant]
     Dosage: UNK
     Route: 065
  14. OMEPRAZOLE [Concomitant]
     Active Substance: OMEPRAZOLE
     Dosage: UNK
     Route: 065
  15. VITAMINS [Concomitant]
     Active Substance: VITAMINS
     Dosage: UNK
     Route: 065
  16. CYCLOBENZAPRINE [Concomitant]
     Active Substance: CYCLOBENZAPRINE
     Route: 065
  17. GABAPENTIN [Concomitant]
     Active Substance: GABAPENTIN
     Route: 065
  18. NAPROXEN [Concomitant]
     Active Substance: NAPROXEN
     Route: 065

REACTIONS (2)
  - Laryngeal oedema [Unknown]
  - Hereditary angioedema [Not Recovered/Not Resolved]

NARRATIVE: CASE EVENT DATE: 20190523
